FAERS Safety Report 13525597 (Version 1)
Quarter: 2017Q2

REPORT INFORMATION
  Report Type: Spontaneous
  Country: FR (occurrence: FR)
  Receive Date: 20170508
  Receipt Date: 20170508
  Transmission Date: 20170830
  Serious: Yes (Hospitalization)
  Sender: FDA-Public Use
  Company Number: PHHY2017FR062887

PATIENT
  Age: 65 Year
  Sex: Male

DRUGS (4)
  1. HYDREA [Concomitant]
     Active Substance: HYDROXYUREA
     Indication: MYELOPROLIFERATIVE NEOPLASM
     Dosage: 10 MG, UNK
     Route: 065
  2. PEGASYS [Concomitant]
     Active Substance: PEGINTERFERON ALFA-2A
     Indication: MYELOPROLIFERATIVE NEOPLASM
     Route: 065
  3. AMOXICILLINE/ACIDE CLAVULANIQUE SANDOZ [Suspect]
     Active Substance: AMOXICILLIN\CLAVULANIC ACID
     Indication: SURGERY
     Dosage: 2 G
     Route: 042
  4. BUPIVACAINE. [Suspect]
     Active Substance: BUPIVACAINE
     Indication: INDUCTION OF ANAESTHESIA
     Route: 042

REACTIONS (2)
  - Cardio-respiratory arrest [Recovered/Resolved]
  - Anaphylactic shock [Recovered/Resolved]

NARRATIVE: CASE EVENT DATE: 20170406
